FAERS Safety Report 17215616 (Version 4)
Quarter: 2025Q3

REPORT INFORMATION
  Report Type: Spontaneous
  Country: EU (occurrence: EU)
  Receive Date: 20191230
  Receipt Date: 20250708
  Transmission Date: 20251020
  Serious: Yes (Death, Life-Threatening, Hospitalization, Other)
  Sender: BAUSCH AND LOMB
  Company Number: EU-GLAXOSMITHKLINE-DE2019EME142804

PATIENT
  Sex: Female
  Weight: 52 kg

DRUGS (46)
  1. ACYCLOVIR [Suspect]
     Active Substance: ACYCLOVIR
     Indication: Systemic lupus erythematosus
  2. ACYCLOVIR [Suspect]
     Active Substance: ACYCLOVIR
     Route: 065
  3. ACYCLOVIR [Suspect]
     Active Substance: ACYCLOVIR
     Dosage: 400 MILLIGRAM, QD
     Route: 065
  4. ACYCLOVIR [Suspect]
     Active Substance: ACYCLOVIR
     Dosage: 1200 MILLIGRAM, QD
     Route: 065
  5. AZATHIOPRINE [Suspect]
     Active Substance: AZATHIOPRINE
     Indication: White blood cell count decreased
     Route: 065
     Dates: start: 1997, end: 2008
  6. AZATHIOPRINE [Suspect]
     Active Substance: AZATHIOPRINE
     Indication: Systemic lupus erythematosus
     Route: 065
     Dates: start: 201906, end: 201907
  7. AZATHIOPRINE [Suspect]
     Active Substance: AZATHIOPRINE
     Indication: Lymphopenia
     Route: 065
     Dates: start: 20100419, end: 201904
  8. BENLYSTA [Suspect]
     Active Substance: BELIMUMAB
     Indication: White blood cell count decreased
     Dosage: 200 MILLIGRAM/KILOGRAM, QWK
     Route: 058
     Dates: start: 201806, end: 201807
  9. BENLYSTA [Suspect]
     Active Substance: BELIMUMAB
     Indication: Systemic lupus erythematosus
     Dosage: 10 MILLIGRAM/KILOGRAM, QWK
     Route: 058
     Dates: start: 201711, end: 201812
  10. BENLYSTA [Suspect]
     Active Substance: BELIMUMAB
     Dosage: 200 MG/KG, WEEKLY
     Route: 058
     Dates: start: 201708, end: 201904
  11. VALSARTAN [Suspect]
     Active Substance: VALSARTAN
     Indication: Systemic lupus erythematosus
     Dosage: UNK UNK, BID 160 (1-0-1)
     Route: 065
  12. PENTACARINAT [Suspect]
     Active Substance: PENTAMIDINE ISETHIONATE
     Indication: Systemic lupus erythematosus
     Route: 055
     Dates: start: 201904
  13. MOLSIDOMINE [Suspect]
     Active Substance: MOLSIDOMINE
     Indication: Systemic lupus erythematosus
     Dosage: UNKNOWN, UNKNOWN, QD 8 RET (0-0-1)
     Route: 065
  14. DETRUSITOL [Suspect]
     Active Substance: TOLTERODINE TARTRATE
     Indication: Systemic lupus erythematosus
     Route: 065
  15. ELIQUIS [Suspect]
     Active Substance: APIXABAN
     Indication: Systemic lupus erythematosus
     Route: 065
  16. MORPHINE [Suspect]
     Active Substance: MORPHINE
     Indication: Systemic lupus erythematosus
     Route: 065
  17. LEVOTHYROXINE [Suspect]
     Active Substance: LEVOTHYROXINE
     Indication: Product used for unknown indication
     Route: 065
  18. LEVOTHYROXINE [Suspect]
     Active Substance: LEVOTHYROXINE
     Route: 065
  19. UMECLIDINIUM BROMIDE [Suspect]
     Active Substance: UMECLIDINIUM BROMIDE
     Indication: Product used for unknown indication
     Route: 065
  20. CHOLECALCIFEROL [Suspect]
     Active Substance: CHOLECALCIFEROL
     Indication: Product used for unknown indication
     Route: 065
  21. EZETIMIBE [Suspect]
     Active Substance: EZETIMIBE
     Indication: Product used for unknown indication
     Route: 065
  22. METOCLOPRAMIDE HYDROCHLORIDE [Suspect]
     Active Substance: METOCLOPRAMIDE HYDROCHLORIDE
     Indication: Product used for unknown indication
     Route: 065
  23. PENTAMIDINE ISETHIONATE [Suspect]
     Active Substance: PENTAMIDINE ISETHIONATE
     Indication: Systemic lupus erythematosus
     Route: 065
  24. MORPHINE SULFATE [Suspect]
     Active Substance: MORPHINE SULFATE
     Indication: Systemic lupus erythematosus
     Route: 065
  25. MORPHINE SULFATE [Suspect]
     Active Substance: MORPHINE SULFATE
     Route: 065
  26. PREDNISOLONE [Suspect]
     Active Substance: PREDNISOLONE
     Indication: Systemic lupus erythematosus
     Route: 065
     Dates: start: 1988
  27. FLUVASTATIN [Concomitant]
     Active Substance: FLUVASTATIN SODIUM
     Indication: Systemic lupus erythematosus
     Dosage: UNKNOWN, UNKNOWN, QD 20 (0-0-1)
  28. APIXABAN [Concomitant]
     Active Substance: APIXABAN
     Indication: Systemic lupus erythematosus
     Route: 065
  29. HYDROXYCHLOROQUINE [Concomitant]
     Active Substance: HYDROXYCHLOROQUINE
     Indication: Product used for unknown indication
     Dates: start: 1994, end: 1997
  30. HYDROXYCHLOROQUINE [Concomitant]
     Active Substance: HYDROXYCHLOROQUINE
     Dates: start: 2008
  31. MCP [Concomitant]
     Active Substance: METOCLOPRAMIDE HYDROCHLORIDE
     Indication: Product used for unknown indication
     Dosage: 10 (UNSPECIFIED)?DOSE: 3 (UNSPECIFIED UNITS)
  32. NITRENDIPINE [Concomitant]
     Active Substance: NITRENDIPINE
     Indication: Product used for unknown indication
  33. EZETIMIBE [Concomitant]
     Active Substance: EZETIMIBE
     Indication: Product used for unknown indication
     Dosage: QD 10 (0-0-1)
  34. ISDN [Concomitant]
     Indication: Product used for unknown indication
     Dosage: BID 20 RET (1-1-0
  35. SAB SIMPLEX [Concomitant]
     Indication: Product used for unknown indication
  36. CHOLECALCIFEROL [Concomitant]
     Active Substance: CHOLECALCIFEROL
     Indication: Product used for unknown indication
     Dosage: UNKNOWN, UNKNOWN, WE, 20000
  37. UMECLIDINIUM BROMIDE\VILANTEROL TRIFENATATE [Concomitant]
     Active Substance: UMECLIDINIUM BROMIDE\VILANTEROL TRIFENATATE
     Indication: Product used for unknown indication
     Route: 055
  38. LEVOTHYROXINE SODIUM [Concomitant]
     Active Substance: LEVOTHYROXINE SODIUM
     Indication: Product used for unknown indication
     Dosage: QD 50 (1-0-0)
  39. DULOXETINE [Concomitant]
     Active Substance: DULOXETINE
     Indication: Product used for unknown indication
     Dosage: QD 30 (1-0-0)
  40. LAXATAN [Concomitant]
     Indication: Product used for unknown indication
  41. NITRENDIPINE [Concomitant]
     Active Substance: NITRENDIPINE
     Indication: Product used for unknown indication
     Route: 065
  42. TOLTERODINE TARTRATE [Concomitant]
     Active Substance: TOLTERODINE TARTRATE
     Indication: Systemic lupus erythematosus
     Route: 065
  43. ISOSORBIDE DINITRATE [Concomitant]
     Active Substance: ISOSORBIDE DINITRATE
     Indication: Product used for unknown indication
     Route: 065
  44. LEVOTHYROXINE SODIUM [Concomitant]
     Active Substance: LEVOTHYROXINE SODIUM
     Indication: Systemic lupus erythematosus
     Route: 065
  45. HYDROXYCHLOROQUINE SULFATE [Concomitant]
     Active Substance: HYDROXYCHLOROQUINE SULFATE
     Indication: Product used for unknown indication
     Route: 048
     Dates: start: 1994, end: 1997
  46. MORPHINE [Concomitant]
     Active Substance: MORPHINE
     Indication: Product used for unknown indication
     Dosage: UNK UNK, BID 30 RET (1-0-1)

REACTIONS (29)
  - Lymphopenia [Fatal]
  - Peritonitis [Fatal]
  - Sepsis [Fatal]
  - Pneumocystis jirovecii pneumonia [Fatal]
  - Colitis ulcerative [Unknown]
  - Skin disorder [Unknown]
  - Fall [Unknown]
  - Leukopenia [Unknown]
  - Hypothyroidism [Unknown]
  - Osteonecrosis [Unknown]
  - Gastritis haemorrhagic [Unknown]
  - Antiphospholipid syndrome [Unknown]
  - Thrombocytopenia [Unknown]
  - Herpes simplex reactivation [Unknown]
  - Drug hypersensitivity [Unknown]
  - Pleuritic pain [Unknown]
  - Urinary tract infection [Unknown]
  - Hypertension [Unknown]
  - Antinuclear antibody negative [Unknown]
  - Gastrooesophageal reflux disease [Unknown]
  - Coombs positive haemolytic anaemia [Unknown]
  - Complex regional pain syndrome [Unknown]
  - Hyperlipidaemia [Unknown]
  - Depression [Unknown]
  - Erysipelas [Unknown]
  - Pancreatitis acute [Unknown]
  - Anxiety disorder [Unknown]
  - Systemic lupus erythematosus [Unknown]
  - Intentional product use issue [Unknown]

NARRATIVE: CASE EVENT DATE: 19900101
